FAERS Safety Report 7279029-4 (Version None)
Quarter: 2011Q1

REPORT INFORMATION
  Report Type: 
  Country: None (occurrence: None)
  Receive Date: 20110207
  Receipt Date: 20110127
  Transmission Date: 20110831
  Serious: Yes (Other)
  Sender: FDA-Public Use
  Company Number: PHHY2010US67605

PATIENT
  Sex: Female
  Weight: 60.8 kg

DRUGS (11)
  1. TRICOR [Concomitant]
  2. AMLODIPINE [Concomitant]
  3. EXJADE [Suspect]
     Indication: THALASSAEMIA
     Dosage: 1000 MG, DAILY
     Route: 048
     Dates: start: 20100928
  4. OMEPRAZOLE [Concomitant]
  5. LASIX [Concomitant]
  6. GLYBURIDE [Concomitant]
  7. FOLIC ACID [Concomitant]
  8. CRESTOR [Concomitant]
  9. METOPROLOL TARTRATE [Concomitant]
  10. CALCIUM [Concomitant]
  11. AMIODARONE [Concomitant]

REACTIONS (3)
  - ABDOMINAL PAIN UPPER [None]
  - CYSTITIS [None]
  - BLOOD CREATININE INCREASED [None]
